FAERS Safety Report 12814441 (Version 1)
Quarter: 2016Q4

REPORT INFORMATION
  Report Type: Spontaneous
  Country: US (occurrence: US)
  Receive Date: 20161005
  Receipt Date: 20161005
  Transmission Date: 20170207
  Serious: No
  Sender: FDA-Public Use
  Company Number: US-AMGEN-USASP2016018068

PATIENT
  Age: 69 Year
  Sex: Female

DRUGS (3)
  1. CRESTOR [Concomitant]
     Active Substance: ROSUVASTATIN CALCIUM
     Indication: BLOOD CHOLESTEROL
     Dosage: UNK
  2. PREDNISONE. [Concomitant]
     Active Substance: PREDNISONE
     Dosage: 60 MG, UNK
     Dates: start: 201404, end: 201601
  3. PROLIA [Suspect]
     Active Substance: DENOSUMAB
     Indication: OSTEOPENIA
     Dosage: UNK
     Route: 065
     Dates: start: 201509

REACTIONS (11)
  - Fall [Unknown]
  - Blood cholesterol increased [Unknown]
  - Activities of daily living impaired [Unknown]
  - Sleep disorder [Unknown]
  - Pain [Unknown]
  - Back pain [Unknown]
  - Bone pain [Unknown]
  - Arthralgia [Unknown]
  - Musculoskeletal pain [Unknown]
  - Myalgia [Unknown]
  - Off label use [Unknown]

NARRATIVE: CASE EVENT DATE: 201509
